FAERS Safety Report 7699422-5 (Version None)
Quarter: 2011Q3

REPORT INFORMATION
  Report Type: 
  Country: None (occurrence: None)
  Receive Date: 20110820
  Receipt Date: 20100817
  Transmission Date: 20111222
  Serious: No
  Sender: FDA-Public Use
  Company Number: US-ALLERGAN-1010658US

PATIENT
  Age: 89 Year
  Sex: Female

DRUGS (3)
  1. SANCTURA XR [Suspect]
     Indication: HYPERTONIC BLADDER
     Dosage: UNK
     Route: 048
     Dates: start: 20100816, end: 20100816
  2. ANTIBIOTIC [Concomitant]
     Indication: LOCALISED INFECTION
  3. DETROL LA [Concomitant]

REACTIONS (1)
  - DYSURIA [None]
